FAERS Safety Report 18026079 (Version 2)
Quarter: 2020Q3

REPORT INFORMATION
  Report Type: Report from Study
  Country: GB (occurrence: GB)
  Receive Date: 20200715
  Receipt Date: 20200731
  Transmission Date: 20201103
  Serious: Yes (Hospitalization)
  Sender: FDA-Public Use
  Company Number: GB-JNJFOC-20200707863

PATIENT
  Age: 14 Year
  Sex: Female

DRUGS (4)
  1. LANTUS [Concomitant]
     Active Substance: INSULIN GLARGINE
     Route: 058
     Dates: start: 20190504
  2. NOVORAPID [Concomitant]
     Active Substance: INSULIN ASPART
     Dosage: WITH FOOD
     Route: 058
     Dates: start: 20190504
  3. PARACETAMOL [Concomitant]
     Active Substance: ACETAMINOPHEN
     Indication: HEADACHE
     Route: 048
     Dates: start: 20190815, end: 20190815
  4. USTEKINUMAB [Suspect]
     Active Substance: USTEKINUMAB
     Indication: TYPE 1 DIABETES MELLITUS
     Route: 058
     Dates: start: 20190722, end: 20191209

REACTIONS (1)
  - Seizure [Recovered/Resolved]

NARRATIVE: CASE EVENT DATE: 20200611
